FAERS Safety Report 15392502 (Version 1)
Quarter: 2018Q3

REPORT INFORMATION
  Report Type: Spontaneous
  Country: US (occurrence: US)
  Receive Date: 20180917
  Receipt Date: 20180917
  Transmission Date: 20181010
  Serious: Yes (Hospitalization)
  Sender: FDA-Public Use
  Company Number: US-JNJFOC-20180841670

PATIENT
  Age: 29 Year
  Sex: Male
  Weight: 90.72 kg

DRUGS (1)
  1. INVEGA TRINZA [Suspect]
     Active Substance: PALIPERIDONE PALMITATE
     Indication: SCHIZOAFFECTIVE DISORDER
     Route: 030
     Dates: start: 2017

REACTIONS (4)
  - Drug ineffective for unapproved indication [Unknown]
  - Off label use [Unknown]
  - Schizoaffective disorder [Unknown]
  - Skin burning sensation [Unknown]

NARRATIVE: CASE EVENT DATE: 2017
